FAERS Safety Report 15292735 (Version 1)
Quarter: 2018Q3

REPORT INFORMATION
  Report Type: Spontaneous
  Country: US (occurrence: US)
  Receive Date: 20180806
  Receipt Date: 20180806
  Transmission Date: 20181010
  Serious: No
  Sender: FDA-Public Use
  Company Number: None

PATIENT
  Age: 47 Year
  Sex: Female

DRUGS (1)
  1. PROLIA [Suspect]
     Active Substance: DENOSUMAB
     Indication: OSTEOPOROSIS
     Dosage: 60MG EVERY 6 MONTHS
     Route: 058
     Dates: start: 20180125

REACTIONS (4)
  - Dysgeusia [None]
  - Palpitations [None]
  - Weight increased [None]
  - Vertigo [None]

NARRATIVE: CASE EVENT DATE: 20180131
